FAERS Safety Report 22630034 (Version 1)
Quarter: 2023Q2

REPORT INFORMATION
  Report Type: Spontaneous
  Country: US (occurrence: US)
  Receive Date: 20230622
  Receipt Date: 20230622
  Transmission Date: 20230721
  Serious: Yes (Other)
  Sender: FDA-Public Use
  Company Number: US-PFIZER INC-202300227046

PATIENT
  Age: 64 Year
  Sex: Male

DRUGS (2)
  1. GENTAMICIN SULFATE [Suspect]
     Active Substance: GENTAMICIN SULFATE
     Indication: Neutropenic colitis
     Dosage: UNK
  2. TICARCILLIN [Suspect]
     Active Substance: TICARCILLIN
     Indication: Neutropenic colitis
     Dosage: UNK

REACTIONS (1)
  - Drug ineffective [Unknown]
